FAERS Safety Report 8178087-2 (Version None)
Quarter: 2012Q1

REPORT INFORMATION
  Report Type: 
  Country: None (occurrence: None)
  Receive Date: 20120301
  Receipt Date: 20120227
  Transmission Date: 20120608
  Serious: Yes (Other)
  Sender: FDA-Public Use
  Company Number: US-BAYER-2012-020112

PATIENT
  Age: 71 Year
  Sex: Male

DRUGS (11)
  1. SODIUM FERRIGLUCONATE [Concomitant]
     Dosage: 125 MG, EVERY 24 HRS
     Route: 042
  2. TRASYLOL [Suspect]
     Dosage: UNK
  3. COREG [Concomitant]
     Dosage: 12.5 MG, BID
  4. LISINOPRIL [Concomitant]
     Dosage: 20 MG, BID
  5. ASPIRIN [Concomitant]
     Dosage: 81 MG, DAILY
  6. ZETIA [Concomitant]
     Dosage: 10 MG, DAILY
  7. PLENDIL [Concomitant]
     Dosage: 5 MG, BID
  8. HUMALOG [Concomitant]
  9. EPOETIN ALFA [Concomitant]
     Dosage: 1000 U, QOD
  10. GEMFIBROZIL [Concomitant]
     Dosage: 600 MG, BID
  11. ZOCOR [Concomitant]
     Dosage: 20 MG, AT NIGHT

REACTIONS (1)
  - RENAL FAILURE [None]
